FAERS Safety Report 8378882-0 (Version None)
Quarter: 2012Q2

REPORT INFORMATION
  Report Type: 
  Country: None (occurrence: None)
  Receive Date: 20120522
  Receipt Date: 20120522
  Transmission Date: 20120825
  Serious: No
  Sender: FDA-Public Use
  Company Number: None

PATIENT
  Sex: Male
  Weight: 101 kg

DRUGS (9)
  1. DOCUSATE [Concomitant]
  2. BEVACIZUMAB (RHUMAB VEGF) [Suspect]
     Dosage: 512 MG
  3. LEUCOVORIN CALCIUM [Suspect]
     Dosage: 904 MG
  4. PHENERGAN [Concomitant]
  5. FILGRASTIM [Concomitant]
  6. ELOXATIN [Suspect]
     Dosage: 192 MG
  7. FLUOROURACIL [Suspect]
     Dosage: 904 MG
  8. HYDROCHLOROTHIAZIDE [Concomitant]
  9. ACYCLOVIR [Concomitant]

REACTIONS (3)
  - BALANCE DISORDER [None]
  - GAIT DISTURBANCE [None]
  - GAZE PALSY [None]
